FAERS Safety Report 8769829 (Version 3)
Quarter: 2013Q1

REPORT INFORMATION
  Report Type: Report from Study
  Country: JP (occurrence: JP)
  Receive Date: 20120905
  Receipt Date: 20130119
  Transmission Date: 20140127
  Serious: Yes (Other)
  Sender: FDA-Public Use
  Company Number: JP-009507513-1207JPN000224

PATIENT
  Age: 60 Year
  Sex: Male
  Weight: 49 kg

DRUGS (21)
  1. PEGINTRON [Suspect]
     Indication: HEPATITIS C
     Dosage: 1.5 MICROGRAM PER KILOGRAM, QW
     Route: 058
     Dates: start: 20120501
  2. REBETOL [Suspect]
     Indication: HEPATITIS C
     Dosage: 600 MG, QD
     Route: 048
     Dates: start: 20120501, end: 20120514
  3. REBETOL [Suspect]
     Dosage: 200 MG, QD
     Route: 048
     Dates: start: 20120515, end: 20120528
  4. REBETOL [Suspect]
     Dosage: 100 MG, QD
     Route: 048
     Dates: start: 20120529, end: 20120624
  5. REBETOL [Suspect]
     Dosage: 200 MG, QD
     Route: 048
     Dates: start: 20120625, end: 20120708
  6. REBETOL [Suspect]
     Dosage: 100 MG, QD
     Route: 048
     Dates: start: 20120709
  7. REBETOL [Suspect]
     Dosage: 100 MG, QD
     Route: 048
     Dates: start: 20120827, end: 20120904
  8. REBETOL [Suspect]
     Dosage: 200 MG, QD
     Route: 048
     Dates: start: 20120905, end: 20120918
  9. REBETOL [Suspect]
     Dosage: 400 MG, QD
     Route: 048
     Dates: start: 20120919, end: 20121028
  10. REBETOL [Suspect]
     Dosage: 200 MG, QD
     Route: 048
     Dates: start: 20121029
  11. TELAPREVIR [Suspect]
     Indication: HEPATITIS C
     Dosage: 1500 MILLIGRAMS, QD
     Route: 048
     Dates: start: 20120501, end: 20120730
  12. GASMOTIN [Concomitant]
     Indication: PROPHYLAXIS
     Route: 048
     Dates: start: 20120501
  13. NESP [Concomitant]
     Indication: ANAEMIA
     Dosage: 60 MICROGRAM, QD AS NEEDED
     Route: 058
     Dates: start: 20120718, end: 20120718
  14. NESP [Concomitant]
     Dosage: 60 MICROGRAM, QD AS NEEDED
     Dates: start: 20120723, end: 20120723
  15. NESP [Concomitant]
     Dosage: 60 MICROGRAM, QD AS NEEDED
     Route: 058
     Dates: start: 20120702, end: 20120702
  16. NESP [Concomitant]
     Dosage: 60 MICROGRAM, QD AS NEEDED
     Route: 058
     Dates: start: 20120709, end: 20120709
  17. PAXIL [Concomitant]
     Indication: PROPHYLAXIS
     Dosage: 20 MG, QD
     Route: 048
  18. SEDEKOPAN [Concomitant]
     Indication: PROPHYLAXIS
     Dosage: 1.5 MG, QD
     Route: 048
  19. BENZBROMARONE [Concomitant]
     Indication: PROPHYLAXIS
     Dosage: 50 MG, QD
     Route: 048
     Dates: end: 20121028
  20. ALLOPURINOL [Suspect]
     Indication: PROPHYLAXIS
     Dosage: 300 MG, QD
     Route: 048
     Dates: end: 20120725
  21. ALLOPURINOL [Suspect]
     Dosage: 100 MG, QD
     Route: 048
     Dates: start: 20121029

REACTIONS (4)
  - Anaemia [Not Recovered/Not Resolved]
  - Decreased appetite [Recovering/Resolving]
  - Anaemia [Not Recovered/Not Resolved]
  - Anaemia [Not Recovered/Not Resolved]
